FAERS Safety Report 23302786 (Version 3)
Quarter: 2024Q1

REPORT INFORMATION
  Report Type: Spontaneous
  Country: DE (occurrence: DE)
  Receive Date: 20231215
  Receipt Date: 20240215
  Transmission Date: 20240409
  Serious: Yes (Hospitalization, Other)
  Sender: FDA-Public Use
  Company Number: DE-OTSUKA-2023_030131

PATIENT
  Age: 23 Year
  Sex: Female

DRUGS (4)
  1. ARIPIPRAZOLE [Interacting]
     Active Substance: ARIPIPRAZOLE
     Indication: Schizophrenia
     Dosage: 20 MILLIGRAM, QD
     Route: 048
  2. ARIPIPRAZOLE [Interacting]
     Active Substance: ARIPIPRAZOLE
     Dosage: 30 MILLIGRAM, QD (IN MORNINGS)
     Route: 048
  3. ABILIFY [Suspect]
     Active Substance: ARIPIPRAZOLE
     Indication: Schizophrenia
     Dosage: 29.25 MILLIGRAM, QD (9.75 MG, EACH IN THE MORNINGS, AT LUNCH AND IN THE EVENING)
     Route: 030
  4. LORAZEPAM [Concomitant]
     Active Substance: LORAZEPAM
     Indication: Product used for unknown indication
     Dosage: UNK, PRN (0.5-1 MG AS REQUIRED)
     Route: 065

REACTIONS (6)
  - Schizophrenia [Recovering/Resolving]
  - Psychotic symptom [Unknown]
  - Acute psychosis [Unknown]
  - Drug level decreased [Unknown]
  - Herpes zoster [Unknown]
  - Drug interaction [Unknown]
